FAERS Safety Report 13540910 (Version 2)
Quarter: 2017Q2

REPORT INFORMATION
  Report Type: Spontaneous
  Country: US (occurrence: US)
  Receive Date: 20170512
  Receipt Date: 20170524
  Transmission Date: 20170830
  Serious: Yes (Other)
  Sender: FDA-Public Use
  Company Number: US-JNJFOC-20170510405

PATIENT
  Age: 45 Year
  Sex: Female
  Weight: 113.4 kg

DRUGS (2)
  1. TOPAMAX [Suspect]
     Active Substance: TOPIRAMATE
     Indication: SEIZURE
     Route: 048
     Dates: start: 20170509
  2. TOPAMAX [Suspect]
     Active Substance: TOPIRAMATE
     Indication: SEIZURE
     Route: 048
     Dates: start: 20170501

REACTIONS (12)
  - Fatigue [Recovered/Resolved]
  - Irritability [Recovered/Resolved]
  - Bowel movement irregularity [Unknown]
  - Disturbance in attention [Recovered/Resolved]
  - Decreased appetite [Unknown]
  - Incorrect dose administered [Unknown]
  - Anxiety [Recovered/Resolved]
  - Depressed mood [Recovered/Resolved]
  - Limb discomfort [Unknown]
  - Paraesthesia [Recovered/Resolved]
  - Cardiac flutter [Unknown]
  - Memory impairment [Unknown]

NARRATIVE: CASE EVENT DATE: 20170501
